FAERS Safety Report 11309450 (Version 1)
Quarter: 2015Q3

REPORT INFORMATION
  Report Type: Spontaneous
  Country: US (occurrence: US)
  Receive Date: 20150724
  Receipt Date: 20150724
  Transmission Date: 20151125
  Serious: No
  Sender: FDA-Public Use
  Company Number: US-ASTRAZENECA-2015SE69155

PATIENT
  Age: 20993 Day
  Sex: Female
  Weight: 63.5 kg

DRUGS (9)
  1. WATER PILL [Concomitant]
     Active Substance: UNSPECIFIED INGREDIENT
     Dosage: 37.5MG QD
  2. INVOKANA [Concomitant]
     Active Substance: CANAGLIFLOZIN
  3. BYDUREON [Suspect]
     Active Substance: EXENATIDE
     Indication: TYPE 2 DIABETES MELLITUS
     Route: 065
     Dates: start: 20150704
  4. GLIMERIPIDE [Concomitant]
  5. PRILOSEC [Concomitant]
     Active Substance: OMEPRAZOLE MAGNESIUM
  6. AMLODOPINE [Concomitant]
     Dosage: 10/20MG BID
  7. LLIPITOR [Concomitant]
  8. LEVEMIR [Concomitant]
     Active Substance: INSULIN DETEMIR
  9. METFORMIN [Concomitant]
     Active Substance: METFORMIN HYDROCHLORIDE

REACTIONS (6)
  - Tenderness [Not Recovered/Not Resolved]
  - Pruritus [Not Recovered/Not Resolved]
  - Pain [Not Recovered/Not Resolved]
  - Product quality issue [Unknown]
  - Injection site pain [Unknown]
  - Injection site reaction [Not Recovered/Not Resolved]

NARRATIVE: CASE EVENT DATE: 20150704
